FAERS Safety Report 11306517 (Version 3)
Quarter: 2016Q1

REPORT INFORMATION
  Report Type: Spontaneous
  Country: US (occurrence: US)
  Receive Date: 20150723
  Receipt Date: 20160317
  Transmission Date: 20160525
  Serious: No
  Sender: FDA-Public Use
  Company Number: ALCN2015US004142

PATIENT
  Age: 49 Year
  Sex: Female
  Weight: 94.79 kg

DRUGS (2)
  1. NEO AND POLY B SULFATES + HYDROCORTISONE [Suspect]
     Active Substance: BACITRACIN\NEOMYCIN\POLYMYXIN B
     Indication: OTITIS EXTERNA
     Dosage: UNK GTT, Q8H
     Route: 001
     Dates: start: 20150621, end: 20150625
  2. CEPHALEXIN. [Concomitant]
     Active Substance: CEPHALEXIN
     Indication: OTITIS EXTERNA
     Dosage: 1 DF, UNK
     Dates: start: 20150621

REACTIONS (1)
  - Ear discomfort [Recovered/Resolved]

NARRATIVE: CASE EVENT DATE: 20150625
